FAERS Safety Report 9596602 (Version 2)
Quarter: 2013Q4

REPORT INFORMATION
  Report Type: Spontaneous
  Country: US (occurrence: US)
  Receive Date: 20131004
  Receipt Date: 20131030
  Transmission Date: 20140711
  Serious: No
  Sender: FDA-Public Use
  Company Number: US-PFIZER INC-2013281476

PATIENT
  Age: 64 Year
  Sex: Male
  Weight: 83 kg

DRUGS (6)
  1. XALKORI [Suspect]
     Dosage: 250 MG, 2X/DAY
     Route: 048
  2. XALKORI [Suspect]
     Dosage: 200 MG, UNK
  3. PROCHLORPER [Concomitant]
     Dosage: 5 MG, UNK
  4. HYDROCO/APAP [Concomitant]
     Dosage: 2.5 / 325 UNK
  5. LIPITOR [Concomitant]
     Dosage: 10 MG, UNK
  6. ZOLPIDEM [Concomitant]
     Dosage: 12.5 MG, UNK

REACTIONS (6)
  - Nausea [Unknown]
  - Dysgeusia [Unknown]
  - Abdominal discomfort [Unknown]
  - Decreased appetite [Unknown]
  - Lethargy [Unknown]
  - Hepatotoxicity [Unknown]
